FAERS Safety Report 25734466 (Version 1)
Quarter: 2025Q3

REPORT INFORMATION
  Report Type: Spontaneous
  Country: GB (occurrence: GB)
  Receive Date: 20250828
  Receipt Date: 20250828
  Transmission Date: 20251021
  Serious: Yes (Hospitalization, Other)
  Sender: AZURITY PHARMACEUTICALS
  Company Number: GB-AZURITY PHARMACEUTICALS, INC.-AZR202506-002627

PATIENT
  Age: 55 Year
  Sex: Male

DRUGS (48)
  1. PRILOSEC [Interacting]
     Active Substance: OMEPRAZOLE MAGNESIUM
     Indication: Duodenal ulcer
     Route: 048
     Dates: start: 20140116
  2. QUETIAPINE FUMARATE [Interacting]
     Active Substance: QUETIAPINE FUMARATE
     Indication: Depression
     Route: 048
     Dates: start: 20150826
  3. OMEPRAZOLE [Interacting]
     Active Substance: OMEPRAZOLE
     Indication: Duodenal ulcer
     Route: 048
     Dates: start: 20140116
  4. OMEPRAZOLE [Interacting]
     Active Substance: OMEPRAZOLE
     Indication: Dyspepsia
  5. RAMIPRIL [Interacting]
     Active Substance: RAMIPRIL
     Indication: Cardiac failure
     Route: 048
     Dates: start: 20130813
  6. RAMIPRIL [Interacting]
     Active Substance: RAMIPRIL
     Route: 048
     Dates: start: 20130813
  7. ISOSORBIDE MONONITRATE [Interacting]
     Active Substance: ISOSORBIDE MONONITRATE
     Indication: Angina pectoris
     Route: 048
     Dates: start: 20160205
  8. IVABRADINE HYDROCHLORIDE [Interacting]
     Active Substance: IVABRADINE HYDROCHLORIDE
     Indication: Angina pectoris
     Route: 065
     Dates: start: 20150211
  9. IVABRADINE HYDROCHLORIDE [Interacting]
     Active Substance: IVABRADINE HYDROCHLORIDE
     Route: 065
  10. IVABRADINE HYDROCHLORIDE [Interacting]
     Active Substance: IVABRADINE HYDROCHLORIDE
     Route: 065
     Dates: start: 20150211
  11. IVABRADINE HYDROCHLORIDE [Interacting]
     Active Substance: IVABRADINE HYDROCHLORIDE
     Dates: start: 20150211
  12. IVABRADINE HYDROCHLORIDE [Interacting]
     Active Substance: IVABRADINE HYDROCHLORIDE
     Route: 065
  13. CARVEDILOL [Interacting]
     Active Substance: CARVEDILOL
     Indication: Angina pectoris
     Route: 065
     Dates: start: 20110616
  14. CARVEDILOL [Interacting]
     Active Substance: CARVEDILOL
     Route: 065
     Dates: start: 20110616
  15. CARVEDILOL [Interacting]
     Active Substance: CARVEDILOL
     Route: 065
     Dates: start: 20110616
  16. CARVEDILOL [Interacting]
     Active Substance: CARVEDILOL
     Route: 065
     Dates: start: 20110616
  17. FUROSEMIDE [Interacting]
     Active Substance: FUROSEMIDE
     Indication: Pulmonary oedema
     Route: 048
     Dates: start: 20160402
  18. FUROSEMIDE [Interacting]
     Active Substance: FUROSEMIDE
     Indication: Left ventricular dysfunction
     Route: 065
     Dates: start: 20160402
  19. FUROSEMIDE [Interacting]
     Active Substance: FUROSEMIDE
     Indication: Lung disorder
     Route: 065
     Dates: start: 20160402
  20. FUROSEMIDE [Interacting]
     Active Substance: FUROSEMIDE
     Indication: Pleural effusion
     Route: 048
     Dates: start: 20160402
  21. BOCOCIZUMAB [Interacting]
     Active Substance: BOCOCIZUMAB
     Indication: Angina pectoris
     Route: 058
     Dates: start: 20150908, end: 20161101
  22. BOCOCIZUMAB [Interacting]
     Active Substance: BOCOCIZUMAB
     Indication: Cardiovascular disorder
     Route: 058
  23. BOCOCIZUMAB [Interacting]
     Active Substance: BOCOCIZUMAB
     Route: 058
     Dates: start: 20110616
  24. BOCOCIZUMAB [Interacting]
     Active Substance: BOCOCIZUMAB
     Route: 058
  25. BOCOCIZUMAB [Interacting]
     Active Substance: BOCOCIZUMAB
     Route: 058
  26. BOCOCIZUMAB [Interacting]
     Active Substance: BOCOCIZUMAB
     Route: 058
  27. BOCOCIZUMAB [Interacting]
     Active Substance: BOCOCIZUMAB
     Route: 058
  28. BOCOCIZUMAB [Interacting]
     Active Substance: BOCOCIZUMAB
     Route: 058
  29. BOCOCIZUMAB [Interacting]
     Active Substance: BOCOCIZUMAB
     Route: 058
  30. SACUBITRIL [Concomitant]
     Active Substance: SACUBITRIL
     Indication: Left ventricular dysfunction
     Route: 065
     Dates: start: 20160601
  31. ACETAMINOPHEN\CODEINE PHOSPHATE [Concomitant]
     Active Substance: ACETAMINOPHEN\CODEINE PHOSPHATE
     Indication: Pain in extremity
     Route: 065
     Dates: start: 20110616
  32. ENTRESTO [Concomitant]
     Active Substance: SACUBITRIL\VALSARTAN
     Indication: Left ventricular dysfunction
     Route: 065
  33. BETAMETHASONE DIPROPIONATE\CLOTRIMAZOLE [Concomitant]
     Active Substance: BETAMETHASONE DIPROPIONATE\CLOTRIMAZOLE
     Indication: Psoriasis
     Route: 065
     Dates: start: 20150626
  34. CODEINE PHOSPHATE [Concomitant]
     Active Substance: CODEINE PHOSPHATE
     Indication: Product used for unknown indication
     Route: 065
  35. QUETIAPINE FUMARATE [Concomitant]
     Active Substance: QUETIAPINE FUMARATE
     Indication: Depression
     Route: 065
     Dates: start: 20150826
  36. FOLIC ACID [Concomitant]
     Active Substance: FOLIC ACID
     Indication: Anaemia
     Route: 065
     Dates: start: 20131211
  37. METHOTREXATE [Concomitant]
     Active Substance: METHOTREXATE
     Indication: Psoriasis
     Route: 065
     Dates: start: 20150727
  38. ATORVASTATIN [Concomitant]
     Active Substance: ATORVASTATIN
     Indication: Cardiovascular disorder
     Route: 065
     Dates: start: 20130708
  39. ASPIRIN [Concomitant]
     Active Substance: ASPIRIN
     Indication: Cardiovascular disorder
     Route: 065
     Dates: start: 20130708
  40. SERTRALINE HYDROCHLORIDE [Concomitant]
     Active Substance: SERTRALINE HYDROCHLORIDE
     Indication: Depression
     Route: 065
     Dates: start: 20110701
  41. BETAMETHASONE DIPROPIONATE [Concomitant]
     Active Substance: BETAMETHASONE DIPROPIONATE
     Indication: Psoriasis
     Route: 065
     Dates: start: 20150626
  42. ASPIRIN [Concomitant]
     Active Substance: ASPIRIN
     Indication: Cardiovascular disorder
     Route: 065
     Dates: start: 20130708
  43. IVABRADINE [Interacting]
     Active Substance: IVABRADINE
     Indication: Angina pectoris
     Route: 065
     Dates: start: 20150211
  44. ACETAMINOPHEN [Concomitant]
     Active Substance: ACETAMINOPHEN
     Indication: Pain in extremity
     Route: 065
     Dates: start: 20110616
  45. OMEPRAZOLE [Interacting]
     Active Substance: OMEPRAZOLE
     Indication: Duodenal ulcer
     Route: 065
     Dates: start: 20140116
  46. OMEPRAZOLE [Interacting]
     Active Substance: OMEPRAZOLE
     Indication: Dyspepsia
  47. OMEPRAZOLE [Interacting]
     Active Substance: OMEPRAZOLE
     Indication: Pain in extremity
  48. NITROGLYCERIN [Concomitant]
     Active Substance: NITROGLYCERIN
     Indication: Cardiovascular disorder
     Route: 065
     Dates: start: 20130902

REACTIONS (12)
  - Cardiac failure [Unknown]
  - Psoriasis [Unknown]
  - Pulmonary oedema [Unknown]
  - Fluid retention [Unknown]
  - Presyncope [Unknown]
  - Ventricular dysfunction [Unknown]
  - Contusion [Recovered/Resolved]
  - Hypotension [Recovered/Resolved]
  - Drug interaction [Recovered/Resolved]
  - Oedema peripheral [Not Recovered/Not Resolved]
  - Anaemia [Unknown]
  - Angina pectoris [Unknown]

NARRATIVE: CASE EVENT DATE: 20130919
